FAERS Safety Report 7898619-9 (Version None)
Quarter: 2011Q4

REPORT INFORMATION
  Report Type: 
  Country: None (occurrence: None)
  Receive Date: 20111107
  Receipt Date: 20111107
  Transmission Date: 20120403
  Serious: Yes (Other)
  Sender: FDA-Public Use
  Company Number: None

PATIENT
  Age: 33 Year
  Sex: Female
  Weight: 74.842 kg

DRUGS (2)
  1. LITHOBID [Concomitant]
  2. ESKALITH [Suspect]
     Indication: BIPOLAR DISORDER
     Dosage: IT DOES NOT MATTER
     Route: 048
     Dates: start: 19960101, end: 20060101

REACTIONS (4)
  - HYPOTHYROIDISM [None]
  - NEPHROPATHY [None]
  - IMPAIRED WORK ABILITY [None]
  - FATIGUE [None]
